FAERS Safety Report 4548829-3 (Version None)
Quarter: 2004Q4

REPORT INFORMATION
  Report Type: 
  Country: None (occurrence: None)
  Receive Date: 20041227
  Receipt Date: 20041122
  Transmission Date: 20050328
  Serious: No
  Sender: FDA-Public Use
  Company Number: 04P-163-0276609-00

PATIENT
  Age: 55 Year
  Sex: Female
  Weight: 56.6996 kg

DRUGS (8)
  1. HUMIRA [Suspect]
     Indication: RHEUMATOID ARTHRITIS
     Dosage: 40 MG, 1 IN 2 WK, SUBCUTANEOUS
     Route: 058
     Dates: start: 20040401
  2. METHOTREXATE [Concomitant]
  3. PREDNISONE [Concomitant]
  4. ARTHROTEC [Concomitant]
  5. FOLIC ACID [Concomitant]
  6. ERGOCALCIFEROL [Concomitant]
  7. CALCIUM GLUCONATE [Concomitant]
  8. ALENDRONATE SODIUM [Concomitant]

REACTIONS (4)
  - RASH [None]
  - RHINORRHOEA [None]
  - TOOTH DISCOLOURATION [None]
  - UNEVALUABLE EVENT [None]
